FAERS Safety Report 5613018-8 (Version None)
Quarter: 2008Q1

REPORT INFORMATION
  Report Type: 
  Country: None (occurrence: None)
  Receive Date: 20080204
  Receipt Date: 20080124
  Transmission Date: 20080703
  Serious: Yes (Hospitalization)
  Sender: FDA-Public Use
  Company Number: FR-PFIZER INC-2008007496

PATIENT
  Sex: Female

DRUGS (5)
  1. SALAZOPYRINE [Suspect]
     Indication: ARTHRALGIA
     Route: 048
     Dates: start: 20071016, end: 20071019
  2. METHOTREXATE [Suspect]
     Indication: ARTHRALGIA
     Route: 048
     Dates: start: 20070801, end: 20071016
  3. METHOTREXATE [Suspect]
     Route: 048
  4. CORTICOSTEROIDS [Concomitant]
     Dates: start: 20070801, end: 20071001
  5. METHOTREXATE [Concomitant]
     Route: 048
     Dates: start: 20070701, end: 20070801

REACTIONS (1)
  - NEUTROPENIA [None]
